FAERS Safety Report 5087291-1 (Version None)
Quarter: 2006Q3

REPORT INFORMATION
  Report Type: 
  Country: None (occurrence: None)
  Receive Date: 20060824
  Receipt Date: 20060410
  Transmission Date: 20061208
  Serious: Yes (Other)
  Sender: FDA-Public Use
  Company Number: US-BAYER-200611547BCC

PATIENT
  Age: 67 Year
  Sex: Male
  Weight: 79 kg

DRUGS (12)
  1. ALEVE [Suspect]
     Indication: ARTHRALGIA
     Dosage: TOTAL DAILY DOSE: 880 MG  UNIT DOSE: 220 MG
     Route: 048
     Dates: start: 20050901, end: 20060401
  2. FLUDROCORT [Concomitant]
  3. NIASPAN [Concomitant]
     Indication: BLOOD CHOLESTEROL ABNORMAL
     Dosage: TOTAL DAILY DOSE: 2000 MG
  4. GLUCOSAMINE CHONDROITIN [Concomitant]
     Route: 048
  5. WALGREENS MULTIVITAMIN [Concomitant]
     Route: 048
  6. CLARITIN [Concomitant]
     Dosage: TOTAL DAILY DOSE: 10 MG
     Route: 048
  7. NIZORAL [Concomitant]
     Route: 061
  8. EXTRA STRENGTH TYLENOL [Concomitant]
     Dosage: TOTAL DAILY DOSE: 1000 MG
     Route: 048
  9. SAW PALMETTO [Concomitant]
     Dosage: TOTAL DAILY DOSE: 500 MG
     Route: 048
  10. FLUDROCORT [Concomitant]
     Dosage: TOTAL DAILY DOSE: 0.2 MG
     Route: 048
  11. KETOCONAZOLE [Concomitant]
     Indication: DRY SKIN
     Route: 061
  12. HYDROCORTISONE VALERATE CREAM 2% [Concomitant]
     Route: 061

REACTIONS (2)
  - CONTUSION [None]
  - MULTIPLE SYSTEM ATROPHY [None]
